FAERS Safety Report 18959052 (Version 5)
Quarter: 2022Q2

REPORT INFORMATION
  Report Type: Spontaneous
  Country: US (occurrence: US)
  Receive Date: 20210302
  Receipt Date: 20220429
  Transmission Date: 20220721
  Serious: No
  Sender: FDA-Public Use
  Company Number: US-PFIZER INC-2021209185

PATIENT
  Age: 15 Year
  Sex: Male

DRUGS (2)
  1. GENOTROPIN [Suspect]
     Active Substance: SOMATROPIN
     Dosage: 2.4 MG, DAILY(7DAYS/WEEK)
  2. GENOTROPIN [Suspect]
     Active Substance: SOMATROPIN
     Dosage: 3.0 MG, DAILY
     Dates: start: 202002

REACTIONS (3)
  - Drug dose omission by device [Unknown]
  - Device delivery system issue [Unknown]
  - Device breakage [Unknown]
